FAERS Safety Report 5345903-9 (Version None)
Quarter: 2007Q2

REPORT INFORMATION
  Report Type: 
  Country: None (occurrence: None)
  Receive Date: 20070605
  Receipt Date: 20070528
  Transmission Date: 20071010
  Serious: Yes (Hospitalization)
  Sender: FDA-Public Use
  Company Number: A0653098A

PATIENT
  Sex: Male

DRUGS (8)
  1. AVANDIA [Suspect]
     Indication: DRUG USE FOR UNKNOWN INDICATION
     Route: 048
  2. METOPROLOL SUCCINATE [Concomitant]
  3. RAMIPRIL [Concomitant]
  4. METFORMIN HCL [Concomitant]
  5. GLYBURIDE [Concomitant]
  6. GLARGINE [Concomitant]
  7. WARFARIN SODIUM [Concomitant]
  8. LASIX [Concomitant]

REACTIONS (6)
  - CARDIAC FAILURE CONGESTIVE [None]
  - HEPATIC ENZYME INCREASED [None]
  - HEPATITIS ACUTE [None]
  - LIVER FUNCTION TEST ABNORMAL [None]
  - MYOCARDIAL ISCHAEMIA [None]
  - PYREXIA [None]
